FAERS Safety Report 5649101-0 (Version None)
Quarter: 2008Q1

REPORT INFORMATION
  Report Type: 
  Country: None (occurrence: None)
  Receive Date: 20080304
  Receipt Date: 20080221
  Transmission Date: 20080703
  Serious: Yes (Hospitalization)
  Sender: FDA-Public Use
  Company Number: US-ELI_LILLY_AND_COMPANY-US200802004127

PATIENT
  Sex: Female

DRUGS (1)
  1. FORTEO [Suspect]
     Indication: SPINAL FRACTURE
     Dosage: UNK, UNK
     Route: 058
     Dates: start: 20070901

REACTIONS (7)
  - CATARACT [None]
  - FALL [None]
  - FRACTURE [None]
  - GAIT DISTURBANCE [None]
  - GENERAL PHYSICAL HEALTH DETERIORATION [None]
  - IMPAIRED DRIVING ABILITY [None]
  - VISION BLURRED [None]
